FAERS Safety Report 10376082 (Version 1)
Quarter: 2014Q1

REPORT INFORMATION
  Report Type: Spontaneous
  Country: US (occurrence: None)
  Receive Date: 20140306
  Receipt Date: 20140306
  Transmission Date: 20141002
  Serious: Yes (Other)
  Sender: FDA-Public Use
  Company Number: 163-21880-13034862

PATIENT
  Age: 80 Year
  Sex: Male
  Weight: 86.18 kg

DRUGS (4)
  1. REVLIMID (LENALIDOMIDE) (5 MILLIGRAM, CAPSULES) [Suspect]
     Indication: CHRONIC LYMPHOCYTIC LEUKAEMIA
     Dosage: 10MG, 1 IN 1D, PO
     Route: 048
     Dates: start: 201203
  2. ASPIRIN (ACETYLSALICYLIC ACID) [Concomitant]
  3. SYNTHROID (LEVOTHROXINE SODIUM) [Concomitant]
  4. VALACYCLOVIR (VALACICLOVIR HYDROCHLORIDE) [Concomitant]

REACTIONS (2)
  - Rash [None]
  - Abdominal pain upper [None]
